FAERS Safety Report 7883725-5 (Version None)
Quarter: 2011Q4

REPORT INFORMATION
  Report Type: 
  Country: None (occurrence: None)
  Receive Date: 20111102
  Receipt Date: 20111029
  Transmission Date: 20120403
  Serious: Yes (Hospitalization)
  Sender: FDA-Public Use
  Company Number: PH-JNJFOC-20110606522

PATIENT
  Sex: Female
  Weight: 45 kg

DRUGS (10)
  1. PLACEBO [Suspect]
     Indication: RHEUMATOID ARTHRITIS
     Route: 047
     Dates: start: 20060916, end: 20080419
  2. BONIVA [Concomitant]
     Route: 048
     Dates: start: 20060721
  3. GOLIMUMAB [Suspect]
     Route: 058
     Dates: start: 20110204
  4. CALCIUM [Concomitant]
     Route: 048
     Dates: start: 20070501
  5. GOLIMUMAB [Suspect]
     Indication: RHEUMATOID ARTHRITIS
     Route: 058
     Dates: start: 20060914
  6. FOLIC ACID [Concomitant]
     Route: 048
     Dates: start: 20060817
  7. METHOTREXATE [Concomitant]
     Route: 048
     Dates: start: 20080801
  8. PREDNISONE [Concomitant]
     Route: 048
     Dates: start: 20050809
  9. ASCORBIC ACID [Concomitant]
     Route: 048
     Dates: start: 20070501
  10. GOLIMUMAB [Suspect]
     Route: 058
     Dates: start: 20110522

REACTIONS (4)
  - GASTRIC ULCER [None]
  - PLEURAL EFFUSION [None]
  - CHOLELITHIASIS [None]
  - TUBERCULOSIS GASTROINTESTINAL [None]
